FAERS Safety Report 17029803 (Version 1)
Quarter: 2019Q4

REPORT INFORMATION
  Report Type: Report from Study
  Country: GB (occurrence: GB)
  Receive Date: 20191114
  Receipt Date: 20191114
  Transmission Date: 20200122
  Serious: Yes (Hospitalization, Other)
  Sender: FDA-Public Use
  Company Number: GB-TEVA-2019-GB-1136917

PATIENT
  Age: 62 Year
  Sex: Male
  Weight: 87.5 kg

DRUGS (2)
  1. EMTRICITABINE AND TENOFOVIR [Suspect]
     Active Substance: EMTRICITABINE\TENOFOVIR
     Indication: HIV INFECTION
     Dosage: 1 DOSAGE FORMS DAILY; 1 DF, QD
     Route: 048
     Dates: start: 20170418
  2. REZOLSTA [Concomitant]
     Active Substance: COBICISTAT\DARUNAVIR ETHANOLATE
     Indication: HIV INFECTION
     Dosage: UNK
     Route: 048
     Dates: start: 20170418

REACTIONS (1)
  - Adenocarcinoma of colon [Recovered/Resolved]
